FAERS Safety Report 19113500 (Version 1)
Quarter: 2021Q2

REPORT INFORMATION
  Report Type: Spontaneous
  Country: US (occurrence: US)
  Receive Date: 20210409
  Receipt Date: 20210409
  Transmission Date: 20210717
  Serious: No
  Sender: FDA-Public Use
  Company Number: US-ALLERGAN-2015429US

PATIENT
  Age: 35 Year
  Sex: Female

DRUGS (4)
  1. LILETTA [Suspect]
     Active Substance: LEVONORGESTREL
     Indication: HEAVY MENSTRUAL BLEEDING
     Dosage: 52 MG, SINGLE
     Route: 015
     Dates: start: 20190516, end: 20200402
  2. VITAMIN D                          /00107901/ [Concomitant]
     Active Substance: ERGOCALCIFEROL
  3. IRON [Concomitant]
     Active Substance: IRON
  4. SYNTHROID [Concomitant]
     Active Substance: LEVOTHYROXINE SODIUM

REACTIONS (13)
  - Off label use [Unknown]
  - Diverticulum [Unknown]
  - Diverticulitis [Unknown]
  - Heavy menstrual bleeding [Unknown]
  - Benign vaginal neoplasm [Recovered/Resolved]
  - Pain [Not Recovered/Not Resolved]
  - Anxiety [Unknown]
  - Ovarian cyst [Unknown]
  - Muscle spasms [Unknown]
  - Intermenstrual bleeding [Recovered/Resolved]
  - Blood urine present [Unknown]
  - Panic attack [Recovered/Resolved]
  - Procedural pain [Unknown]

NARRATIVE: CASE EVENT DATE: 2019
